FAERS Safety Report 7645609-7 (Version None)
Quarter: 2011Q3

REPORT INFORMATION
  Report Type: 
  Country: None (occurrence: None)
  Receive Date: 20110729
  Receipt Date: 20110722
  Transmission Date: 20111222
  Serious: Yes (Other)
  Sender: FDA-Public Use
  Company Number: PHHY2011IT67354

PATIENT
  Sex: Male

DRUGS (1)
  1. AMOXICILLIN [Suspect]
     Indication: TONSILLITIS
     Dosage: 40 MG/KG, DAILY
     Route: 048
     Dates: start: 20110516, end: 20110519

REACTIONS (2)
  - ANGIOEDEMA [None]
  - URTICARIA [None]
